FAERS Safety Report 6999204-3 (Version None)
Quarter: 2010Q3

REPORT INFORMATION
  Report Type: 
  Country: None (occurrence: None)
  Receive Date: 20100920
  Receipt Date: 20090721
  Transmission Date: 20110219
  Serious: Yes (Other)
  Sender: FDA-Public Use
  Company Number: US-ASTRAZENECA-2007UW05833

PATIENT
  Age: 18010 Day
  Sex: Male
  Weight: 94.3 kg

DRUGS (5)
  1. SEROQUEL [Suspect]
     Route: 048
     Dates: start: 20030327, end: 20060801
  2. NABUMETONE [Concomitant]
     Dates: start: 20030217
  3. PAXIL CR [Concomitant]
     Dosage: 25 AND 37.5 MG DISPENSED
     Dates: start: 20030327
  4. CELEBREX [Concomitant]
     Dates: start: 20030512
  5. ATIVAN [Concomitant]
     Dosage: 1 MG PRN
     Dates: start: 20050603

REACTIONS (4)
  - DIABETES MELLITUS INADEQUATE CONTROL [None]
  - KETOACIDOSIS [None]
  - PANCREATITIS [None]
  - TYPE 2 DIABETES MELLITUS [None]
